FAERS Safety Report 18153542 (Version 2)
Quarter: 2021Q1

REPORT INFORMATION
  Report Type: Report from Study
  Country: BR (occurrence: BR)
  Receive Date: 20200816
  Receipt Date: 20210313
  Transmission Date: 20210419
  Serious: Yes (Hospitalization, Other)
  Sender: FDA-Public Use
  Company Number: NVSC2020BR223123

PATIENT
  Sex: Male
  Weight: 52 kg

DRUGS (14)
  1. SERETIDE [Concomitant]
     Active Substance: FLUTICASONE PROPIONATE\SALMETEROL XINAFOATE
     Indication: DYSPNOEA
     Dosage: (25MCG/250MCG), BID(START DATE MORE THAN 10 YEARS AGO), INHALATION ON ORAL
     Route: 055
  2. ENTRESTO [Concomitant]
     Active Substance: SACUBITRIL\VALSARTAN
     Dosage: 1 DF, BID
     Route: 048
     Dates: start: 20200726
  3. CARVEDILOL. [Concomitant]
     Active Substance: CARVEDILOL
     Indication: CARDIAC FAILURE
     Dosage: 1 DF (3,125MG), BID (MORNING AND NIGHT) STARTED APPROX. 2 MONTHS AGO
     Route: 048
  4. SIMVASTATIN. [Suspect]
     Active Substance: SIMVASTATIN
     Indication: ABDOMINAL DISCOMFORT
     Dosage: UNK
     Route: 048
  5. SIMVASTATIN. [Suspect]
     Active Substance: SIMVASTATIN
     Indication: CARDIAC FAILURE
     Dosage: 20 MG, QD(START DATE ONE YEAR AGO)
     Route: 048
  6. LASIX [Concomitant]
     Active Substance: FUROSEMIDE
     Dosage: 1 DF (40MG), QD
     Route: 048
  7. BACTRIM [Concomitant]
     Active Substance: SULFAMETHOXAZOLE\TRIMETHOPRIM
     Indication: HIV INFECTION
     Dosage: 1 DF,( THREE TIMES A WEEK START DATE 3 YEARS AGO)
     Route: 048
  8. LAMIVUDINE AND ZIDOVUDINE [Concomitant]
     Active Substance: LAMIVUDINE\ZIDOVUDINE
     Indication: HIV INFECTION
     Dosage: 1 DF, QD(START DATE THREE YEARS AGO)
     Route: 048
  9. SPIRIVA [Concomitant]
     Active Substance: TIOTROPIUM BROMIDE MONOHYDRATE
     Indication: DYSPNOEA
     Dosage: (2.5 MCG) QD, (MORE THAN 10 YEARS AGO)
     Route: 055
  10. LASIX [Concomitant]
     Active Substance: FUROSEMIDE
     Indication: SWELLING
     Dosage: 1 DF (40 MG), QD (MANY YEARS AGO CAN^T REMEMBER WHEN)
     Route: 048
  11. LASIX [Concomitant]
     Active Substance: FUROSEMIDE
     Dosage: 2 DF (40MG), QD, DISCONTINUED AFTER 15 DAYS
     Route: 048
  12. SOMALGIN CARDIO [Concomitant]
     Active Substance: ASPIRIN\DIHYDROXYALUMINUM AMINOACETATE ANHYDROUS\MAGNESIUM CARBONATE
     Indication: CARDIAC DISORDER
     Dosage: 81 MG, QD,(TWO YEARS AGO)
     Route: 048
  13. ENTRESTO [Concomitant]
     Active Substance: SACUBITRIL\VALSARTAN
     Indication: CARDIAC FAILURE
     Dosage: 1 DF, BID (STOP DATE? USED FOR ONE MONTH)
     Route: 048
     Dates: start: 202004
  14. LOSARTAN. [Concomitant]
     Active Substance: LOSARTAN
     Indication: CARDIAC FAILURE
     Dosage: 0.5 DF (25MG), QD
     Route: 048

REACTIONS (16)
  - Lung disorder [Not Recovered/Not Resolved]
  - Pneumonia [Recovered/Resolved]
  - Type 2 diabetes mellitus [Recovering/Resolving]
  - Decreased appetite [Recovering/Resolving]
  - Underweight [Not Recovered/Not Resolved]
  - Peripheral swelling [Not Recovered/Not Resolved]
  - Pneumonia [Unknown]
  - Syncope [Recovered/Resolved]
  - Peripheral swelling [Recovered/Resolved]
  - Tremor [Recovered/Resolved]
  - Pneumonia [Recovered/Resolved]
  - HIV infection [Not Recovered/Not Resolved]
  - Retching [Recovering/Resolving]
  - Weight decreased [Not Recovered/Not Resolved]
  - Blood pressure abnormal [Unknown]
  - Diabetes mellitus [Recovering/Resolving]

NARRATIVE: CASE EVENT DATE: 2001
